FAERS Safety Report 9664136 (Version 2)
Quarter: 2014Q2

REPORT INFORMATION
  Report Type: Spontaneous
  Country: US (occurrence: US)
  Receive Date: 20131101
  Receipt Date: 20140519
  Transmission Date: 20141212
  Serious: Yes (Hospitalization)
  Sender: FDA-Public Use
  Company Number: US-B.I. PHARMACEUTICALS,INC./RIDGEFIELD-2013-BI-34148BP

PATIENT
  Sex: Male
  Weight: 86.18 kg

DRUGS (12)
  1. PRADAXA [Suspect]
     Indication: ATRIAL FIBRILLATION
     Route: 065
     Dates: start: 20120525, end: 20130113
  2. ASPIRIN [Concomitant]
     Indication: ATRIAL FIBRILLATION
     Dosage: 81 MG
     Route: 065
     Dates: start: 2006
  3. METOPROLOL [Concomitant]
     Dosage: 50 MG
     Route: 048
     Dates: start: 2006
  4. NEXIUM [Concomitant]
     Route: 048
     Dates: start: 2006
  5. NORVASC [Concomitant]
     Dosage: 2.5 MG
     Route: 048
     Dates: start: 2004
  6. GEMFIBROZIL [Concomitant]
     Route: 065
  7. LEVOTHYROXINE [Concomitant]
     Indication: HYPOTHYROIDISM
     Dosage: 50 MG
     Route: 048
     Dates: start: 2006
  8. ENALAPRIL [Concomitant]
     Dosage: 20 MG
     Route: 048
  9. ZETIA [Concomitant]
     Route: 065
  10. MAXZIDE [Concomitant]
     Dosage: DOSE PER APPLICATION :50/75 MG
     Route: 048
     Dates: start: 2005
  11. LIPITOR [Concomitant]
     Route: 065
     Dates: start: 2007
  12. REGLAN [Concomitant]
     Route: 065

REACTIONS (3)
  - Gastrointestinal haemorrhage [Unknown]
  - Arteriovenous malformation [Unknown]
  - Anaemia [Unknown]
